FAERS Safety Report 4535729-8 (Version None)
Quarter: 2004Q4

REPORT INFORMATION
  Report Type: 
  Country: None (occurrence: None)
  Receive Date: 20041223
  Receipt Date: 20040113
  Transmission Date: 20050328
  Serious: No
  Sender: FDA-Public Use
  Company Number: US-GLAXOSMITHKLINE-A0492912A

PATIENT
  Age: 76 Year
  Sex: Male

DRUGS (4)
  1. FLONASE [Suspect]
     Dosage: 2SPR PER DAY
     Route: 045
     Dates: start: 20031216, end: 20040106
  2. HYDROCHLOROTHIAZIDE [Concomitant]
  3. DIOVAN [Concomitant]
  4. ASPIRIN [Concomitant]

REACTIONS (5)
  - HYPOAESTHESIA ORAL [None]
  - INTRANASAL NUMBNESS [None]
  - NASAL DISCOMFORT [None]
  - NASAL OEDEMA [None]
  - SWELLING FACE [None]
